FAERS Safety Report 6971932-5 (Version None)
Quarter: 2010Q3

REPORT INFORMATION
  Report Type: 
  Country: None (occurrence: None)
  Receive Date: 20100908
  Receipt Date: 20100908
  Transmission Date: 20110219
  Serious: Yes (Disabling)
  Sender: FDA-Public Use
  Company Number: None

PATIENT
  Age: 67 Year
  Sex: Female
  Weight: 54.4316 kg

DRUGS (3)
  1. PREDNISONE [Suspect]
     Indication: LUNG DISORDER
     Dosage: 40 MG Q DAY PO, 1 MO. @ 40 MG. THEN
     Route: 048
     Dates: start: 20091217, end: 20100221
  2. PREDNISONE [Suspect]
     Indication: OXYGEN SATURATION DECREASED
     Dosage: 40 MG Q DAY PO, 1 MO. @ 40 MG. THEN
     Route: 048
     Dates: start: 20091217, end: 20100221
  3. PREDNISONE [Suspect]
     Indication: PYREXIA
     Dosage: 40 MG Q DAY PO, 1 MO. @ 40 MG. THEN
     Route: 048
     Dates: start: 20091217, end: 20100221

REACTIONS (4)
  - ARTHRALGIA [None]
  - GRAVITATIONAL OEDEMA [None]
  - PAIN IN EXTREMITY [None]
  - PARAESTHESIA [None]
